FAERS Safety Report 14624737 (Version 3)
Quarter: 2018Q3

REPORT INFORMATION
  Report Type: Spontaneous
  Country: US (occurrence: US)
  Receive Date: 20180312
  Receipt Date: 20180720
  Transmission Date: 20181010
  Serious: No
  Sender: FDA-Public Use
  Company Number: US-PFIZER INC-2018098742

PATIENT
  Age: 64 Year
  Sex: Male

DRUGS (16)
  1. LISINOPRIL?H [Concomitant]
     Dosage: UNK, (20?12.5M)
  2. NIACIN. [Concomitant]
     Active Substance: NIACIN
     Dosage: 750 MG, UNK (ER TBC)
  3. SUTENT [Suspect]
     Active Substance: SUNITINIB MALATE
     Indication: RENAL CANCER
     Dosage: 50 MG, CYCLIC, (TAKE 1 CAPSULE BY MOUTH EVERY DAY FOR 4 WEEKS ON, THEN 2 WEEKS OFF)
     Route: 048
     Dates: start: 20170714
  4. CEPHALEXIN. [Concomitant]
     Active Substance: CEPHALEXIN
     Dosage: 500 MG, UNK
  5. ENOXAPARIN [Concomitant]
     Active Substance: ENOXAPARIN
     Dosage: UNK, 100 MG/ML, (S SOL)
  6. HYDROCODONE [Concomitant]
     Active Substance: HYDROCODONE
     Dosage: UNK, (5?325MG)
  7. HYDROMORPHON AL [Concomitant]
     Active Substance: HYDROMORPHONE HYDROCHLORIDE
     Dosage: UNK, 2 MG/ML, UNK (SOL)
  8. ALPRAZOLAM. [Concomitant]
     Active Substance: ALPRAZOLAM
     Dosage: 0.25 MG, UNK
  9. GEMFIBROZIL. [Concomitant]
     Active Substance: GEMFIBROZIL
     Dosage: 600 MG, UNK
  10. PREDNISONE. [Concomitant]
     Active Substance: PREDNISONE
     Dosage: 20 MG, UNK
  11. SUTENT [Suspect]
     Active Substance: SUNITINIB MALATE
     Dosage: 50 MG, CYCLIC, (TAKE 1 CAPSULE BY MOUTH EVERY DAY FOR 4 WEEKS ON, THEN 2 WEEKS OFF)
     Route: 048
     Dates: start: 201707
  12. LISINOPRIL. [Concomitant]
     Active Substance: LISINOPRIL
     Dosage: 20 MG, UNK
  13. ZOFRAN [Concomitant]
     Active Substance: ONDANSETRON HYDROCHLORIDE
     Dosage: 4 MG, UNK
  14. POLYETHYLENE GLYCOL [Concomitant]
     Active Substance: POLYETHYLENE GLYCOLS
     Dosage: UNK (POW)
  15. FENTANYL PT7 [Concomitant]
     Dosage: UNK, (75 MCG/HR)
  16. OXYCODONE HC [Concomitant]
     Dosage: 5 MG, UNK

REACTIONS (5)
  - Coagulopathy [Unknown]
  - Dry eye [Not Recovered/Not Resolved]
  - Diarrhoea [Not Recovered/Not Resolved]
  - Abdominal discomfort [Recovered/Resolved]
  - Rash [Not Recovered/Not Resolved]
